FAERS Safety Report 18922744 (Version 3)
Quarter: 2021Q2

REPORT INFORMATION
  Report Type: Spontaneous
  Country: US (occurrence: US)
  Receive Date: 20210222
  Receipt Date: 20210419
  Transmission Date: 20210717
  Serious: No
  Sender: FDA-Public Use
  Company Number: US-PFIZER INC-2021153711

PATIENT
  Age: 11 Year
  Sex: Male

DRUGS (1)
  1. GENOTROPIN [Suspect]
     Active Substance: SOMATROPIN
     Dosage: 1.2 MG
     Dates: start: 202005

REACTIONS (4)
  - Exposure via skin contact [Unknown]
  - Device leakage [Unknown]
  - Drug dose omission by device [Unknown]
  - Accidental exposure to product [Unknown]
